FAERS Safety Report 8957427 (Version 1)
Quarter: 2012Q4

REPORT INFORMATION
  Report Type: Spontaneous
  Country: US (occurrence: None)
  Receive Date: 20121205
  Receipt Date: 20121205
  Transmission Date: 20130627
  Serious: Yes (Other)
  Sender: FDA-Public Use
  Company Number: None

PATIENT
  Age: 47 Year
  Sex: Female
  Weight: 65.32 kg

DRUGS (2)
  1. METOCLOPRAMIDE [Suspect]
     Indication: VOMITING
     Route: 042
     Dates: start: 20121024, end: 20121024
  2. METOCLOPRAMIDE [Suspect]
     Indication: ABDOMINAL PAIN
     Route: 042
     Dates: start: 20121024, end: 20121024

REACTIONS (10)
  - Drug effect prolonged [None]
  - Nausea [None]
  - Gastrooesophageal reflux disease [None]
  - Anxiety [None]
  - Agitation [None]
  - Feeling abnormal [None]
  - Emotional distress [None]
  - Emotional disorder [None]
  - Mental disorder [None]
  - Panic attack [None]
